FAERS Safety Report 21644579 (Version 1)
Quarter: 2022Q4

REPORT INFORMATION
  Report Type: Spontaneous
  Country: CN (occurrence: None)
  Receive Date: 20221125
  Receipt Date: 20221125
  Transmission Date: 20230112
  Serious: Yes (Hospitalization, Other)
  Sender: FDA-Public Use
  Company Number: 2022A384473

PATIENT
  Age: 20937 Day
  Sex: Female
  Weight: 73.5 kg

DRUGS (2)
  1. OSIMERTINIB MESYLATE [Suspect]
     Active Substance: OSIMERTINIB MESYLATE
     Indication: Chemotherapy
     Route: 048
     Dates: start: 20221014, end: 20221115
  2. CRIZOTINIB [Suspect]
     Active Substance: CRIZOTINIB
     Indication: Chemotherapy
     Route: 048
     Dates: start: 20221014, end: 20221115

REACTIONS (1)
  - Myelosuppression [Recovering/Resolving]

NARRATIVE: CASE EVENT DATE: 20221116
